FAERS Safety Report 18731518 (Version 2)
Quarter: 2021Q1

REPORT INFORMATION
  Report Type: Spontaneous
  Country: CN (occurrence: CN)
  Receive Date: 20210112
  Receipt Date: 20210120
  Transmission Date: 20210419
  Serious: Yes (Other)
  Sender: FDA-Public Use
  Company Number: CN-BAYER-2021-019830

PATIENT
  Age: 37 Year
  Sex: Female

DRUGS (1)
  1. YASMIN [Suspect]
     Active Substance: DROSPIRENONE\ETHINYL ESTRADIOL
     Dosage: UNK
     Route: 048
     Dates: start: 2019

REACTIONS (5)
  - Pneumonia [Recovered/Resolved]
  - Metrorrhagia [Recovered/Resolved]
  - Cough [Recovered/Resolved]
  - Metrorrhagia [Recovered/Resolved]
  - Abnormal withdrawal bleeding [None]

NARRATIVE: CASE EVENT DATE: 20201228
